FAERS Safety Report 4997117-X (Version None)
Quarter: 2006Q2

REPORT INFORMATION
  Report Type: 
  Country: None (occurrence: None)
  Receive Date: 20060508
  Receipt Date: 20060508
  Transmission Date: 20061013
  Serious: Yes (Hospitalization)
  Sender: FDA-Public Use
  Company Number: None

PATIENT
  Age: 69 Year
  Sex: Male
  Weight: 91.173 kg

DRUGS (3)
  1. BEVACIZUMAB GENENTECH [Suspect]
     Indication: GASTRIC CANCER
     Dosage: 15  MG/KG    D1 EACH 21D    IV DRIP
     Route: 041
     Dates: start: 20050725, end: 20060403
  2. OXALIPLATIN                   SANOFI [Suspect]
     Indication: GASTRIC CANCER
     Dosage: 75 MG/M2    D1 EACH 21D    IV DRIP
     Route: 041
     Dates: start: 20050725, end: 20060403
  3. DOCETAXEL                      AVENTIS [Suspect]
     Indication: GASTRIC CANCER
     Dosage: 70 MG/M2     D1 EACH 21D    IV DRIP
     Route: 041
     Dates: start: 20050725, end: 20060403

REACTIONS (2)
  - DISEASE PROGRESSION [None]
  - FEBRILE NEUTROPENIA [None]
